FAERS Safety Report 7710539-9 (Version None)
Quarter: 2011Q3

REPORT INFORMATION
  Report Type: 
  Country: None (occurrence: None)
  Receive Date: 20110818
  Receipt Date: 20110809
  Transmission Date: 20111222
  Serious: Yes (Hospitalization)
  Sender: FDA-Public Use
  Company Number: AEUSA201100213

PATIENT

DRUGS (1)
  1. GAMUNEX [Suspect]
     Indication: MYASTHENIA GRAVIS
     Dates: end: 20110801

REACTIONS (1)
  - HAEMOLYTIC ANAEMIA [None]
